FAERS Safety Report 9647807 (Version 2)
Quarter: 2013Q4

REPORT INFORMATION
  Report Type: Spontaneous
  Country: US (occurrence: US)
  Receive Date: 20131028
  Receipt Date: 20131101
  Transmission Date: 20140711
  Serious: No
  Sender: FDA-Public Use
  Company Number: US-PFIZER INC-2013302233

PATIENT
  Sex: Female

DRUGS (1)
  1. EFFEXOR XR [Suspect]
     Dosage: UNK

REACTIONS (18)
  - Depressed mood [Unknown]
  - Asthenia [Unknown]
  - Pain [Unknown]
  - Headache [Unknown]
  - Apathy [Unknown]
  - Insomnia [Unknown]
  - Feelings of worthlessness [Unknown]
  - Feeling guilty [Unknown]
  - Disturbance in attention [Unknown]
  - Abdominal discomfort [Unknown]
  - Nervousness [Unknown]
  - Tension [Unknown]
  - Phobia [Unknown]
  - Dyspnoea [Unknown]
  - Negative thoughts [Unknown]
  - Fatigue [Unknown]
  - Psychiatric symptom [Unknown]
  - Anxiety [Unknown]
